FAERS Safety Report 9597821 (Version 1)
Quarter: 2013Q4

REPORT INFORMATION
  Report Type: Spontaneous
  Country: US (occurrence: US)
  Receive Date: 20131004
  Receipt Date: 20131004
  Transmission Date: 20140711
  Serious: No
  Sender: FDA-Public Use
  Company Number: US-AMGEN-USASP2013021134

PATIENT
  Age: 50 Year
  Sex: Female

DRUGS (1)
  1. ENBREL [Suspect]
     Indication: SPINAL OSTEOARTHRITIS
     Dosage: 50 MG, QWK
     Route: 058
     Dates: start: 20111123, end: 20130318

REACTIONS (1)
  - Drug effect incomplete [Unknown]
